FAERS Safety Report 23471073 (Version 1)
Quarter: 2024Q1

REPORT INFORMATION
  Report Type: Spontaneous
  Country: US (occurrence: US)
  Receive Date: 20240202
  Receipt Date: 20240202
  Transmission Date: 20240409
  Serious: Yes (Other)
  Sender: FDA-Public Use
  Company Number: US-PFIZER INC-PV202400014104

PATIENT
  Age: 63 Year
  Sex: Female

DRUGS (3)
  1. PAXLOVID [Suspect]
     Active Substance: NIRMATRELVIR\RITONAVIR
     Indication: COVID-19 treatment
     Dosage: UNK
     Route: 065
  2. HUMIRA [Suspect]
     Active Substance: ADALIMUMAB
     Indication: Colitis ulcerative
     Dosage: 40 MG (EVERY 2 WEEKS)
     Route: 058
  3. SPIKEVAX (ELASOMERAN) [Suspect]
     Active Substance: ELASOMERAN
     Indication: COVID-19 immunisation
     Dosage: 1 DF
     Route: 030

REACTIONS (9)
  - Colitis ulcerative [Unknown]
  - Disturbance in attention [Unknown]
  - Temperature intolerance [Unknown]
  - Nasal pruritus [Unknown]
  - Distractibility [Unknown]
  - Renal pain [Unknown]
  - Tremor [Unknown]
  - Dizziness [Unknown]
  - Feeling abnormal [Unknown]
